FAERS Safety Report 9726884 (Version 1)
Quarter: 2013Q4

REPORT INFORMATION
  Report Type: Spontaneous
  Country: US (occurrence: US)
  Receive Date: 20131203
  Receipt Date: 20131203
  Transmission Date: 20140711
  Serious: No
  Sender: FDA-Public Use
  Company Number: US-NOVEN-13US006776

PATIENT
  Age: 40 Year
  Sex: Female

DRUGS (2)
  1. FENTANYL [Suspect]
     Indication: INTERVERTEBRAL DISC PROTRUSION
     Dosage: 50 UG/HR
     Route: 062
  2. FENTANYL [Suspect]
     Indication: MIGRAINE

REACTIONS (3)
  - Insomnia [Unknown]
  - Application site pruritus [Not Recovered/Not Resolved]
  - Application site erythema [Not Recovered/Not Resolved]
